FAERS Safety Report 14013273 (Version 1)
Quarter: 2017Q3

REPORT INFORMATION
  Report Type: Report from Study
  Country: US (occurrence: US)
  Receive Date: 20170926
  Receipt Date: 20170926
  Transmission Date: 20171128
  Serious: Yes (Other)
  Sender: FDA-Public Use
  Company Number: US-UCBSA-2017010677

PATIENT
  Age: 20 Year
  Sex: Male

DRUGS (12)
  1. LACOSAMIDE. [Suspect]
     Active Substance: LACOSAMIDE
     Indication: SEIZURE
     Dosage: 150 MGX2
  2. KEPPRA [Suspect]
     Active Substance: LEVETIRACETAM
     Indication: PRODUCT USED FOR UNKNOWN INDICATION
     Dosage: 750 MG, 2X/DAY (BID)
  3. ZONEGRAN [Suspect]
     Active Substance: ZONISAMIDE
     Indication: PRODUCT USED FOR UNKNOWN INDICATION
     Dosage: 250 MG
  4. LAMICTAL [Suspect]
     Active Substance: LAMOTRIGINE
     Indication: SEIZURE
  5. LACOSAMIDE. [Suspect]
     Active Substance: LACOSAMIDE
     Dosage: 50 MG
  6. SEROQUEL [Concomitant]
     Active Substance: QUETIAPINE FUMARATE
     Indication: PRODUCT USED FOR UNKNOWN INDICATION
     Dosage: 50 MG, 2X/DAY (BID)
  7. BRIVIACT [Suspect]
     Active Substance: BRIVARACETAM
     Indication: PRODUCT USED FOR UNKNOWN INDICATION
     Dosage: 10 MG
  8. BRIVIACT [Suspect]
     Active Substance: BRIVARACETAM
     Dosage: 30 MG, 2X/DAY (BID)
  9. CANNABIDIOL [Concomitant]
     Active Substance: CANNABIDIOL
     Indication: PRODUCT USED FOR UNKNOWN INDICATION
  10. PHENOBARBITAL. [Concomitant]
     Active Substance: PHENOBARBITAL
     Indication: PRODUCT USED FOR UNKNOWN INDICATION
     Dosage: UNK
  11. BRIVIACT [Suspect]
     Active Substance: BRIVARACETAM
     Dosage: 20 MG
  12. ZONEGRAN [Suspect]
     Active Substance: ZONISAMIDE
     Dosage: 50 MG

REACTIONS (14)
  - Abdominal pain [Unknown]
  - Insomnia [Unknown]
  - Drug ineffective [Unknown]
  - Somnolence [Unknown]
  - Myoclonus [Unknown]
  - Blood glucose decreased [Unknown]
  - Adverse drug reaction [Unknown]
  - Fear [Unknown]
  - Anger [Unknown]
  - Initial insomnia [Unknown]
  - Adverse event [Unknown]
  - Generalised tonic-clonic seizure [Not Recovered/Not Resolved]
  - Depression [Unknown]
  - Irritability [Unknown]
